FAERS Safety Report 9422425 (Version 2)
Quarter: 2013Q3

REPORT INFORMATION
  Report Type: Spontaneous
  Country: IT (occurrence: IT)
  Receive Date: 20130726
  Receipt Date: 20130830
  Transmission Date: 20140515
  Serious: Yes (Life-Threatening)
  Sender: FDA-Public Use
  Company Number: IT-SANOFI-AVENTIS-2013SA072913

PATIENT
  Age: 71 Year
  Sex: Male

DRUGS (5)
  1. ARAVA [Suspect]
     Indication: RHEUMATOID ARTHRITIS
     Route: 048
     Dates: start: 20100814, end: 20110501
  2. REMICADE [Suspect]
     Indication: RHEUMATOID ARTHRITIS
     Dosage: STRENGTH: 100 MG/ML
     Route: 065
     Dates: start: 20130101, end: 20130312
  3. ROACTEMRA [Suspect]
     Indication: RHEUMATOID ARTHRITIS
     Dosage: STRENGTH: 20 MG/ML
     Route: 042
     Dates: start: 20110601, end: 20110901
  4. SIMPONI [Suspect]
     Indication: RHEUMATOID ARTHRITIS
     Dosage: STRENGTH: 0.5 ML
     Route: 058
     Dates: start: 20110314, end: 20110501
  5. CHLOROQUINE [Concomitant]
     Dates: start: 20080101

REACTIONS (1)
  - Progressive multifocal leukoencephalopathy [Not Recovered/Not Resolved]
